FAERS Safety Report 15888410 (Version 1)
Quarter: 2019Q1

REPORT INFORMATION
  Report Type: Report from Study
  Country: GB (occurrence: GB)
  Receive Date: 20190130
  Receipt Date: 20190130
  Transmission Date: 20190417
  Serious: Yes (Hospitalization)
  Sender: FDA-Public Use
  Company Number: GB-ROCHE-2250715

PATIENT
  Sex: Female
  Weight: 79 kg

DRUGS (2)
  1. HYDROXYCHLOROQUINE [Concomitant]
     Active Substance: HYDROXYCHLOROQUINE
     Indication: RHEUMATOID ARTHRITIS
  2. ROACTEMRA [Suspect]
     Active Substance: TOCILIZUMAB
     Indication: RHEUMATOID ARTHRITIS
     Route: 042
     Dates: start: 20180424, end: 20180717

REACTIONS (3)
  - Oroantral fistula [Unknown]
  - Chronic sinusitis [Unknown]
  - Sepsis [Unknown]

NARRATIVE: CASE EVENT DATE: 20181012
